FAERS Safety Report 6662032-2 (Version None)
Quarter: 2010Q1

REPORT INFORMATION
  Report Type: 
  Country: None (occurrence: None)
  Receive Date: 20100331
  Receipt Date: 20100107
  Transmission Date: 20100710
  Serious: Yes (Other)
  Sender: FDA-Public Use
  Company Number: US-BRISTOL-MYERS SQUIBB COMPANY-14935423

PATIENT
  Age: 64 Year
  Sex: Male

DRUGS (4)
  1. ERBITUX [Suspect]
     Dates: start: 20081001, end: 20090201
  2. LEUCOVORIN CALCIUM [Suspect]
     Dates: start: 20081001, end: 20090201
  3. FLUOROURACIL [Suspect]
     Dates: start: 20081001, end: 20090201
  4. OXALIPLATIN [Suspect]
     Dates: start: 20081001, end: 20090201

REACTIONS (1)
  - DISEASE PROGRESSION [None]
